FAERS Safety Report 12248734 (Version 1)
Quarter: 2016Q2

REPORT INFORMATION
  Report Type: Spontaneous
  Country: US (occurrence: US)
  Receive Date: 20160408
  Receipt Date: 20160408
  Transmission Date: 20160815
  Serious: No
  Sender: FDA-Public Use
  Company Number: US-TEVA-645044ACC

PATIENT
  Age: 19 Year
  Sex: Female
  Weight: 43.13 kg

DRUGS (4)
  1. PRENATAL VITAMINS [Concomitant]
     Active Substance: VITAMINS
  2. COLACE [Concomitant]
     Active Substance: DOCUSATE SODIUM
  3. MULTIVITAMINS [Concomitant]
     Active Substance: VITAMINS
  4. PARAGARD T 380A [Suspect]
     Active Substance: COPPER
     Indication: CONTRACEPTION
     Dates: start: 20160121, end: 20160310

REACTIONS (1)
  - Device expulsion [Recovered/Resolved]

NARRATIVE: CASE EVENT DATE: 20160310
